FAERS Safety Report 9210357 (Version 2)
Quarter: 2013Q2

REPORT INFORMATION
  Report Type: Report from Study
  Country: US (occurrence: US)
  Receive Date: 20130404
  Receipt Date: 20130506
  Transmission Date: 20140414
  Serious: No
  Sender: FDA-Public Use
  Company Number: PHEH2013US007646

PATIENT
  Sex: Female

DRUGS (4)
  1. TASIGNA [Suspect]
     Indication: CHRONIC MYELOID LEUKAEMIA
     Dosage: 300 MG, Q12H
     Route: 048
  2. ALLOPURINOL [Suspect]
     Indication: PROPHYLAXIS
     Dosage: 300 MG, DAILY
     Route: 048
     Dates: start: 20110131, end: 20110321
  3. OMEPRAZOLE [Concomitant]
     Dosage: 10 MG, UNK
  4. MIRALAX [Concomitant]

REACTIONS (2)
  - Rash [Unknown]
  - Constipation [Unknown]
